FAERS Safety Report 13242282 (Version 1)
Quarter: 2017Q1

REPORT INFORMATION
  Report Type: Spontaneous
  Country: US (occurrence: US)
  Receive Date: 20170216
  Receipt Date: 20170216
  Transmission Date: 20170428
  Serious: No
  Sender: FDA-Public Use
  Company Number: None

PATIENT
  Age: 82 Year
  Sex: Female
  Weight: 68.1 kg

DRUGS (19)
  1. LEVOFLOXACIN. [Suspect]
     Active Substance: LEVOFLOXACIN
     Indication: PNEUMONIA
     Dosage: 1 TABLET PER DAY FOR 7 DAYS - 24 HRS. APART
     Route: 048
     Dates: start: 20161227, end: 20170102
  2. LORAZEPAM. [Concomitant]
     Active Substance: LORAZEPAM
  3. MURO 128 DROPS [Concomitant]
  4. ATORVASTATIN [Concomitant]
     Active Substance: ATORVASTATIN
  5. SERTRALINE [Concomitant]
     Active Substance: SERTRALINE HYDROCHLORIDE
  6. FISH OIL [Concomitant]
     Active Substance: FISH OIL
  7. TRAMADOL. [Concomitant]
     Active Substance: TRAMADOL
  8. TRIAMCINOLONE [Concomitant]
     Active Substance: TRIAMCINOLONE
  9. BABY ASPIRIN [Concomitant]
     Active Substance: ASPIRIN
  10. C-PAP MACHINE [Concomitant]
     Active Substance: DEVICE
  11. FLAXSEED [Concomitant]
     Active Substance: FLAX SEED
  12. LEVOTHYROXINE. [Concomitant]
     Active Substance: LEVOTHYROXINE
  13. CALCIUM SILVER [Concomitant]
  14. VITAMIN D3 [Concomitant]
     Active Substance: CHOLECALCIFEROL
  15. REFRESH OPTIVE [Concomitant]
     Active Substance: CARBOXYMETHYLCELLULOSE SODIUM\GLYCERIN
  16. CALCIUM [Concomitant]
     Active Substance: CALCIUM
  17. COQ10 [Concomitant]
     Active Substance: UBIDECARENONE
  18. ACETAMINOPHEN. [Concomitant]
     Active Substance: ACETAMINOPHEN
  19. MRUO 128 OINTMENT [Concomitant]

REACTIONS (2)
  - Tongue discolouration [None]
  - Gingivitis [None]

NARRATIVE: CASE EVENT DATE: 20161230
